FAERS Safety Report 8615493-3 (Version None)
Quarter: 2012Q3

REPORT INFORMATION
  Report Type: 
  Country: None (occurrence: None)
  Receive Date: 20120823
  Receipt Date: 20120814
  Transmission Date: 20120928
  Serious: Yes (Hospitalization, Disabling)
  Sender: FDA-Public Use
  Company Number: US-009507513-1208USA006840

PATIENT

DRUGS (3)
  1. CRESTOR [Concomitant]
  2. TICE BCG [Suspect]
     Indication: BLADDER CANCER
     Dosage: UNK
     Route: 043
     Dates: start: 20111215, end: 20120119
  3. TICE BCG [Suspect]
     Dosage: UNK
     Route: 043
     Dates: start: 20120712

REACTIONS (3)
  - PYREXIA [None]
  - BLADDER CANCER RECURRENT [None]
  - ARTHRALGIA [None]
